FAERS Safety Report 19350745 (Version 2)
Quarter: 2021Q2

REPORT INFORMATION
  Report Type: Spontaneous
  Country: IT (occurrence: IT)
  Receive Date: 20210531
  Receipt Date: 20210601
  Transmission Date: 20210717
  Serious: Yes (Hospitalization)
  Sender: FDA-Public Use
  Company Number: IT-HIKMA PHARMACEUTICALS USA INC.-IT-H14001-21-54479

PATIENT
  Age: 32 Year
  Sex: Male

DRUGS (1)
  1. CLINDAMICINA HIKMA 600 MG/4 ML [Suspect]
     Active Substance: CLINDAMYCIN PHOSPHATE
     Indication: MEDICATION ERROR
     Route: 065

REACTIONS (4)
  - Headache [Recovering/Resolving]
  - Amnesia [Recovering/Resolving]
  - Medication error [Recovering/Resolving]
  - Disorientation [Recovering/Resolving]

NARRATIVE: CASE EVENT DATE: 20210504
